FAERS Safety Report 16088081 (Version 1)
Quarter: 2019Q1

REPORT INFORMATION
  Report Type: Spontaneous
  Country: NL (occurrence: NL)
  Receive Date: 20190319
  Receipt Date: 20190319
  Transmission Date: 20190418
  Serious: Yes (Death)
  Sender: FDA-Public Use
  Company Number: NL-ACCORD-113624

PATIENT
  Age: 49 Year
  Sex: Female
  Weight: 57 kg

DRUGS (16)
  1. DOCETAXEL. [Suspect]
     Active Substance: DOCETAXEL
     Indication: NON-SMALL CELL LUNG CANCER STAGE IV
     Dosage: STRENGTH: 20 MG / ML, TREATMENT 122 MG IN 1 HOUR
     Dates: start: 20180921
  2. ONDANSETRON [Concomitant]
     Active Substance: ONDANSETRON
     Dosage: STRENGTH: 4 MG, MELTING TABLET
  3. MAGNESIUM HYDROXIDE. [Concomitant]
     Active Substance: MAGNESIUM HYDROXIDE
     Dosage: CHEWING TAB, 3 X PER DAY 724 MILLIGRAMS
  4. NINTEDANIB [Concomitant]
     Active Substance: NINTEDANIB
     Dosage: 2 X DAILY 200 MG
     Dates: start: 20180911
  5. OMEPRAZOLE. [Concomitant]
     Active Substance: OMEPRAZOLE
     Dosage: 1 X PER DAY 40 MILLIGRAMS
  6. OXYCODONE [Concomitant]
     Active Substance: OXYCODONE
     Dosage: IF NECESSARY 1 TO 6 TIMES PER DAY 10 MILLIGRAMS
  7. DEXAMETHASONE. [Concomitant]
     Active Substance: DEXAMETHASONE
     Dosage: STRENGTH: 0.5 MG, ACCORDING TO SCHEDULE
  8. CELECOXIB. [Concomitant]
     Active Substance: CELECOXIB
     Dosage: 2 X PER DAY 200 MILLIGRAMS
  9. SALBUTAMOL [Concomitant]
     Active Substance: ALBUTEROL
     Dosage: STRENGTH: 200UG / DO 60 DO DISCUS, ZN
  10. CALCIUM CARBONATE. [Concomitant]
     Active Substance: CALCIUM CARBONATE
     Dosage: STRENGTH: 1.25G / 800IE, CHEWING,?1 X DAILY 1 PIECE
  11. FOLIUMZUUR [Concomitant]
     Active Substance: FOLIC ACID
     Dosage: STRENGTH: 0.5 MG,  1 X PER DAY 0.5 MILIGRAM
  12. DENOSUMAB [Concomitant]
     Active Substance: DENOSUMAB
     Dosage: 60 MILLIGRAMS ONCE A MONTH
  13. PREGABALIN. [Concomitant]
     Active Substance: PREGABALIN
     Dosage: 2 X PER DAY 75 MILLIGRAMS
  14. AMITRIPTYLINE [Concomitant]
     Active Substance: AMITRIPTYLINE
     Dosage: 1 X PER DAY 25 MILLIGRAMS
  15. LACTULOSE. [Concomitant]
     Active Substance: LACTULOSE
     Dosage: 3 TIMES A DAY 15 MILLILITERS
  16. PARACETAMOL [Concomitant]
     Active Substance: ACETAMINOPHEN
     Dosage: 4 DD 1 GRAM

REACTIONS (1)
  - Cardiac failure acute [Fatal]

NARRATIVE: CASE EVENT DATE: 20180926
